FAERS Safety Report 9280678 (Version 1)
Quarter: 2013Q2

REPORT INFORMATION
  Report Type: Spontaneous
  Country: US (occurrence: US)
  Receive Date: 20130509
  Receipt Date: 20130509
  Transmission Date: 20140414
  Serious: No
  Sender: FDA-Public Use
  Company Number: US-PFIZER INC-2013142532

PATIENT
  Sex: Female
  Weight: 70.3 kg

DRUGS (9)
  1. ZOLOFT [Suspect]
     Indication: DEPRESSION
     Dosage: 25 MG, UNK
  2. ZOLOFT [Suspect]
     Dosage: 50 MG, UNK
  3. ZOLOFT [Suspect]
     Dosage: 100 MG, UNK
  4. ZOLOFT [Suspect]
     Dosage: UNK
  5. CODEINE [Suspect]
     Indication: PAIN
     Dosage: UNK
  6. PRISTIQ [Concomitant]
     Indication: DEPRESSION
     Dosage: UNK
     Dates: start: 2012
  7. ALPRAZOLAM [Concomitant]
     Indication: ANXIETY
     Dosage: 2.5 MG, UNK
  8. TRAMADOL HYDROCHLORIDE [Concomitant]
     Indication: BACK PAIN
     Dosage: 50 MG, 2X/DAY
  9. LORTAB [Concomitant]
     Indication: SLEEP DISORDER
     Dosage: UNK
     Dates: start: 2013

REACTIONS (1)
  - Drug ineffective [Unknown]
